FAERS Safety Report 22095758 (Version 1)
Quarter: 2023Q1

REPORT INFORMATION
  Report Type: Spontaneous
  Country: US (occurrence: US)
  Receive Date: 20230314
  Receipt Date: 20230314
  Transmission Date: 20230418
  Serious: Yes (Other)
  Sender: FDA-Public Use
  Company Number: US-JNJFOC-20230315530

PATIENT
  Age: 40 Year
  Sex: Female
  Weight: 78.5 kg

DRUGS (8)
  1. OPSUMIT [Suspect]
     Active Substance: MACITENTAN
     Indication: Product used for unknown indication
     Route: 048
  2. ORENITRAM [Suspect]
     Active Substance: TREPROSTINIL
     Indication: Pulmonary arterial hypertension
     Route: 048
     Dates: start: 20220209
  3. ORENITRAM [Suspect]
     Active Substance: TREPROSTINIL
     Route: 048
  4. ORENITRAM [Suspect]
     Active Substance: TREPROSTINIL
     Route: 048
  5. ORENITRAM [Suspect]
     Active Substance: TREPROSTINIL
     Route: 048
  6. ORENITRAM [Suspect]
     Active Substance: TREPROSTINIL
     Route: 048
  7. ELIQUIS [Concomitant]
     Active Substance: APIXABAN
  8. SILDENAFIL CITRATE [Concomitant]
     Active Substance: SILDENAFIL CITRATE

REACTIONS (10)
  - Muscle rupture [Unknown]
  - Tendon rupture [Unknown]
  - Degenerative bone disease [Unknown]
  - Intervertebral disc degeneration [Unknown]
  - Joint injury [Unknown]
  - Arthralgia [Not Recovered/Not Resolved]
  - Musculoskeletal disorder [Unknown]
  - Nausea [Unknown]
  - Abdominal discomfort [Unknown]
  - Diarrhoea [Unknown]
